FAERS Safety Report 5532734-X (Version None)
Quarter: 2007Q4

REPORT INFORMATION
  Report Type: 
  Country: None (occurrence: None)
  Receive Date: 20071204
  Receipt Date: 20071126
  Transmission Date: 20080405
  Serious: Yes (Hospitalization, Other)
  Sender: FDA-Public Use
  Company Number: PHBS2007JP11982

PATIENT
  Age: 8 Month
  Sex: Female
  Weight: 5 kg

DRUGS (9)
  1. NEORAL [Suspect]
     Indication: LIVER TRANSPLANT
     Dosage: UNK, UNK
     Route: 048
     Dates: start: 20070621, end: 20070703
  2. PROGRAF [Concomitant]
     Indication: LIVER TRANSPLANT
     Dosage: 2.4 DF/DAY
     Dates: start: 20070714
  3. SANDIMMUNE [Suspect]
     Indication: LIVER TRANSPLANT
     Route: 042
     Dates: start: 20070616, end: 20070622
  4. PREDONINE [Concomitant]
     Indication: LIVER TRANSPLANT
     Dates: start: 20070620
  5. PREDNISOLONE ACETATE [Concomitant]
     Indication: LIVER TRANSPLANT
     Dosage: 2 MG/DAY
     Route: 042
     Dates: start: 20070616, end: 20070620
  6. SULPERAZON [Concomitant]
     Indication: PYREXIA
     Dosage: 0.4 G/DAY
     Route: 042
     Dates: start: 20070704, end: 20070705
  7. LASIX [Concomitant]
     Indication: OEDEMA
     Dosage: 2 MG/DAY
     Route: 048
     Dates: start: 20070630, end: 20070708
  8. WARFARIN SODIUM [Concomitant]
     Indication: THROMBOSIS PROPHYLAXIS
     Dosage: 0.8 DF/DAY
     Route: 048
     Dates: start: 20070622, end: 20070630
  9. KAYTWO [Concomitant]
     Indication: HYPOKALAEMIA
     Dosage: 0.5 ML/DAY
     Route: 048
     Dates: start: 20070707, end: 20070713

REACTIONS (4)
  - EOSINOPHILIA [None]
  - NEUTROPHIL PERCENTAGE DECREASED [None]
  - PLATELET COUNT DECREASED [None]
  - WHITE BLOOD CELL COUNT INCREASED [None]
